FAERS Safety Report 8019023-9 (Version None)
Quarter: 2011Q4

REPORT INFORMATION
  Report Type: 
  Country: None (occurrence: None)
  Receive Date: 20111227
  Receipt Date: 20111213
  Transmission Date: 20120403
  Serious: Yes (Death)
  Sender: FDA-Public Use
  Company Number: UTC-012884

PATIENT
  Age: 67 Year
  Sex: Male
  Weight: 135.4 kg

DRUGS (3)
  1. REMODULIN [Suspect]
     Indication: PULMONARY ARTERIAL HYPERTENSION
     Dosage: 96.48 UG/KG (0.067 UG/KG, 1 IN 1 MIN),SUBCUTANEOUS
     Route: 058
     Dates: start: 20100818
  2. COUMADIN [Concomitant]
  3. DIURETICS (DIURETICS) [Concomitant]

REACTIONS (1)
  - DEATH [None]
